FAERS Safety Report 18691231 (Version 1)
Quarter: 2021Q1

REPORT INFORMATION
  Report Type: Spontaneous
  Country: ES (occurrence: ES)
  Receive Date: 20210101
  Receipt Date: 20210101
  Transmission Date: 20210419
  Serious: Yes (Hospitalization)
  Sender: FDA-Public Use
  Company Number: ES-ACCORD-213172

PATIENT
  Age: 16 Year
  Sex: Male
  Weight: 48.5 kg

DRUGS (5)
  1. IMATINIB/IMATINIB MESILATE [Concomitant]
     Active Substance: IMATINIB
     Indication: ACUTE LEUKAEMIA
     Route: 048
     Dates: start: 20200819, end: 20200825
  2. VINCRISTINE [Concomitant]
     Active Substance: VINCRISTINE
     Indication: ACUTE LEUKAEMIA
     Dosage: (809SU)
     Route: 042
     Dates: start: 20200828, end: 20200828
  3. METHOTREXATE. [Suspect]
     Active Substance: METHOTREXATE
     Indication: ACUTE LEUKAEMIA
     Route: 042
     Dates: start: 20200828, end: 20200828
  4. IMATINIB/IMATINIB MESILATE [Concomitant]
     Active Substance: IMATINIB
     Indication: ACUTE LEUKAEMIA
     Route: 048
     Dates: start: 20200826
  5. DEXAMETHASONE. [Concomitant]
     Active Substance: DEXAMETHASONE
     Indication: ACUTE LEUKAEMIA
     Route: 042
     Dates: start: 20200828, end: 20200831

REACTIONS (2)
  - Toxicity to various agents [Unknown]
  - Acute kidney injury [Recovered/Resolved]

NARRATIVE: CASE EVENT DATE: 20200829
